FAERS Safety Report 25591154 (Version 1)
Quarter: 2025Q3

REPORT INFORMATION
  Report Type: Spontaneous
  Country: US (occurrence: None)
  Receive Date: 20250722
  Receipt Date: 20250722
  Transmission Date: 20251020
  Serious: Yes (Life-Threatening)
  Sender: FDA-CTU
  Company Number: None

PATIENT
  Age: 35 Year
  Sex: Male
  Weight: 92.25 kg

DRUGS (1)
  1. TIRZEPATIDE [Suspect]
     Active Substance: TIRZEPATIDE
     Indication: Weight decreased
     Dates: start: 20250528, end: 20250628

REACTIONS (4)
  - Abdominal pain [None]
  - Vomiting [None]
  - Product sterility issue [None]
  - Product quality issue [None]

NARRATIVE: CASE EVENT DATE: 20250628
